FAERS Safety Report 7701542-3 (Version None)
Quarter: 2011Q3

REPORT INFORMATION
  Report Type: 
  Country: None (occurrence: None)
  Receive Date: 20110819
  Receipt Date: 20110819
  Transmission Date: 20111222
  Serious: Yes (Other)
  Sender: FDA-Public Use
  Company Number: None

PATIENT
  Sex: Female

DRUGS (1)
  1. HUMIRA [Suspect]
     Indication: PSORIATIC ARTHROPATHY
     Dosage: 40 MG Q2WKS SQ
     Route: 058
     Dates: start: 20091029, end: 20110603

REACTIONS (2)
  - MALAISE [None]
  - INTRACRANIAL HYPOTENSION [None]
